FAERS Safety Report 15004028 (Version 2)
Quarter: 2018Q3

REPORT INFORMATION
  Report Type: Report from Study
  Country: None (occurrence: ES)
  Receive Date: 20180613
  Receipt Date: 20180911
  Transmission Date: 20181010
  Serious: Yes (Other)
  Sender: FDA-Public Use
  Company Number: ES-ABBVIE-18K-144-2385668-00

PATIENT
  Age: 64 Year
  Sex: Male
  Weight: 62 kg

DRUGS (2)
  1. ZEFFIX [Concomitant]
     Active Substance: LAMIVUDINE
     Indication: HEPATITIS
     Route: 050
     Dates: start: 20170328
  2. HUMIRA [Suspect]
     Active Substance: ADALIMUMAB
     Indication: SPONDYLITIS
     Route: 058
     Dates: start: 20160602, end: 201807

REACTIONS (1)
  - Renal neoplasm [Recovering/Resolving]

NARRATIVE: CASE EVENT DATE: 201805
